FAERS Safety Report 14375064 (Version 3)
Quarter: 2018Q1

REPORT INFORMATION
  Report Type: Spontaneous
  Country: US (occurrence: US)
  Receive Date: 20180111
  Receipt Date: 20180316
  Transmission Date: 20180509
  Serious: No
  Sender: FDA-Public Use
  Company Number: US-PFIZER INC-2018012400

PATIENT
  Age: 77 Year
  Sex: Female

DRUGS (1)
  1. AROMASIN [Suspect]
     Active Substance: EXEMESTANE
     Indication: BREAST CANCER FEMALE
     Dosage: 25 MG, DAILY
     Route: 048
     Dates: start: 2015

REACTIONS (1)
  - Influenza like illness [Recovering/Resolving]

NARRATIVE: CASE EVENT DATE: 20180106
